FAERS Safety Report 21269031 (Version 1)
Quarter: 2022Q3

REPORT INFORMATION
  Report Type: Spontaneous
  Country: US (occurrence: US)
  Receive Date: 20220830
  Receipt Date: 20220830
  Transmission Date: 20221026
  Serious: No
  Sender: FDA-Public Use
  Company Number: US-AMGEN-USASP2022144075

PATIENT
  Age: 65 Year
  Sex: Female
  Weight: 66.667 kg

DRUGS (6)
  1. PROLIA [Suspect]
     Active Substance: DENOSUMAB
     Indication: Product used for unknown indication
     Dosage: UNK
     Route: 065
     Dates: end: 202207
  2. KORLYM [Suspect]
     Active Substance: MIFEPRISTONE
     Indication: Pituitary-dependent Cushing^s syndrome
     Dosage: 300 MILLIGRAM, QD
     Route: 048
     Dates: start: 20201202, end: 20221211
  3. KORLYM [Suspect]
     Active Substance: MIFEPRISTONE
     Dosage: 600 MILLIGRAM, QD
     Route: 048
     Dates: start: 20201212
  4. CELEXA [Concomitant]
     Active Substance: CITALOPRAM HYDROBROMIDE
     Dosage: UNK
     Dates: start: 2022
  5. SPIRONOLACTONE [Concomitant]
     Active Substance: SPIRONOLACTONE
     Dosage: UNK
     Dates: start: 2022
  6. TAMOXIFEN [Concomitant]
     Active Substance: TAMOXIFEN

REACTIONS (2)
  - Blood calcium decreased [Unknown]
  - Blood potassium decreased [Unknown]

NARRATIVE: CASE EVENT DATE: 20220701
